FAERS Safety Report 9897977 (Version 1)
Quarter: 2014Q1

REPORT INFORMATION
  Report Type: Spontaneous
  Country: US (occurrence: US)
  Receive Date: 20140214
  Receipt Date: 20140214
  Transmission Date: 20141002
  Serious: No
  Sender: FDA-Public Use
  Company Number: US-PFIZER INC-2014041535

PATIENT
  Age: 47 Year
  Sex: Female
  Weight: 82.99 kg

DRUGS (5)
  1. IBUPROFEN [Suspect]
     Dosage: UNK
  2. LYRICA [Suspect]
     Indication: FIBROMYALGIA
     Dosage: 50 MG, DAILY
  3. LYRICA [Suspect]
     Indication: DIABETIC NEUROPATHY
     Dosage: 75 MG, 3X/DAY
  4. LYRICA [Suspect]
     Dosage: UNK
  5. PHENAZOPYRIDINE [Suspect]
     Indication: BLADDER PAIN
     Dosage: UNK

REACTIONS (5)
  - Nausea [Unknown]
  - Gastritis [Unknown]
  - Epigastric discomfort [Unknown]
  - Bladder disorder [Unknown]
  - Vomiting [Unknown]
